FAERS Safety Report 8828220 (Version 5)
Quarter: 2013Q1

REPORT INFORMATION
  Report Type: Spontaneous
  Country: GB (occurrence: GB)
  Receive Date: 20121008
  Receipt Date: 20130320
  Transmission Date: 20140127
  Serious: Yes (Other)
  Sender: FDA-Public Use
  Company Number: PHFR2011GB007278

PATIENT
  Age: 47 Year
  Sex: Male

DRUGS (21)
  1. CLOZARIL [Suspect]
     Indication: SCHIZOPHRENIA, PARANOID TYPE
     Dosage: UNK
     Route: 048
     Dates: start: 20111102
  2. CLOZARIL [Suspect]
     Dosage: 375 MG, PER DAY IN DIVIDED DOSAGE
     Route: 048
  3. G-CSF [Concomitant]
     Dosage: UNK
  4. FILGRASTIM [Concomitant]
     Dosage: 300 UG, ONCE WEEKLY
  5. LEVOTHYROXINE [Concomitant]
     Dosage: 200 UG, QD
  6. FERROUS FUMARATE [Concomitant]
     Dosage: 210 MG, QD
  7. SOLIFENACIN [Concomitant]
     Dosage: 5 MG, QD
  8. LANSOPRAZOLE [Concomitant]
     Dosage: 30 MG, QD
  9. HYOSCINE HYDROBROMIDE [Concomitant]
     Dosage: 300 UG, TDS
  10. LAMOTRIGINE [Concomitant]
     Dosage: 10 MG, UNK
     Dates: start: 20120820
  11. LAMOTRIGINE [Concomitant]
     Dosage: 50 MG, BID
     Dates: start: 20120925
  12. BECLOMETASONE [Concomitant]
     Dosage: UNK, BID
  13. BECLOMETASONE [Concomitant]
     Dosage: UNK, 100 QVAR T BD
  14. COLECALCIFEROL [Concomitant]
     Dosage: 20000 U, ONCE WEEKLY
  15. MOVICOL [Concomitant]
  16. MOVICOL [Concomitant]
     Dosage: UNK, QDS
  17. DIAZEPAM [Concomitant]
     Dosage: 5 MG, BD PRN
  18. HALOPERIDOL [Concomitant]
     Dosage: 2 MG, QDS
  19. HALOPERIDOL [Concomitant]
     Dosage: 1 MG, QDS
  20. HALOPERIDOL [Concomitant]
     Dosage: 1 MG, QDS PRN
  21. LITHIUM CARBONATE [Concomitant]
     Dosage: 950 MG, PER DAY IN DIVIDED DOSAGE

REACTIONS (10)
  - Prothrombin time prolonged [Recovering/Resolving]
  - Activated partial thromboplastin time prolonged [Recovering/Resolving]
  - International normalised ratio increased [Recovering/Resolving]
  - Purpura [Recovered/Resolved]
  - Petechiae [Recovering/Resolving]
  - Psychotic disorder [Unknown]
  - Thrombocytopenia [Recovered/Resolved]
  - Platelet count decreased [Recovered/Resolved]
  - Alanine aminotransferase increased [Unknown]
  - White blood cell count decreased [Recovered/Resolved]
